FAERS Safety Report 9664000 (Version 1)
Quarter: 2013Q4

REPORT INFORMATION
  Report Type: Spontaneous
  Country: US (occurrence: None)
  Receive Date: 20131030
  Receipt Date: 20131030
  Transmission Date: 20140711
  Serious: No
  Sender: FDA-Public Use
  Company Number: None

PATIENT
  Age: 36 Year
  Sex: Female
  Weight: 84.37 kg

DRUGS (1)
  1. DEXILANT [Suspect]
     Indication: GASTROOESOPHAGEAL REFLUX DISEASE
     Dosage: ONCE CAPSULE ONCE DAILY
     Route: 048
     Dates: start: 20131026, end: 20131028

REACTIONS (4)
  - Urticaria [None]
  - Pain [None]
  - Pruritus [None]
  - Insomnia [None]
